FAERS Safety Report 5364265-4 (Version None)
Quarter: 2007Q2

REPORT INFORMATION
  Report Type: 
  Country: None (occurrence: None)
  Receive Date: 20070620
  Receipt Date: 20070614
  Transmission Date: 20071010
  Serious: Yes (Other)
  Sender: FDA-Public Use
  Company Number: FR-GENENTECH-242038

PATIENT
  Sex: Female
  Weight: 54 kg

DRUGS (6)
  1. RANIBIZUMAB [Suspect]
     Indication: MACULAR DEGENERATION
     Dosage: 0.5 MG, IN OD
     Route: 031
     Dates: start: 20070308, end: 20070510
  2. FUROSEMIDE [Concomitant]
     Indication: DRUG USE FOR UNKNOWN INDICATION
  3. ALDACTONE [Concomitant]
     Indication: DRUG USE FOR UNKNOWN INDICATION
  4. DAONIL [Concomitant]
     Indication: DRUG USE FOR UNKNOWN INDICATION
  5. PRAVASTATIN [Concomitant]
     Indication: DRUG USE FOR UNKNOWN INDICATION
  6. STEROID (NAME UNKNOWN) [Concomitant]
     Indication: DRUG USE FOR UNKNOWN INDICATION

REACTIONS (1)
  - HYPERSENSITIVITY [None]
